FAERS Safety Report 5106539-8 (Version None)
Quarter: 2006Q3

REPORT INFORMATION
  Report Type: 
  Country: None (occurrence: None)
  Receive Date: 20060731
  Receipt Date: 20060523
  Transmission Date: 20061208
  Serious: Yes (Other)
  Sender: FDA-Public Use
  Company Number: US-JNJFOC-20060200121

PATIENT
  Age: 47 Year
  Sex: Female

DRUGS (16)
  1. RISPERDAL [Suspect]
     Indication: MANIA
     Dosage: ORAL
     Route: 048
     Dates: start: 19980101
  2. SEROQUEL [Suspect]
     Indication: DRUG USE FOR UNKNOWN INDICATION
     Dosage: ORAL
     Route: 048
  3. ZYPREXA [Suspect]
     Indication: DRUG USE FOR UNKNOWN INDICATION
     Dosage: ORAL
     Route: 048
  4. VITAMIN E [Concomitant]
  5. ASCORBIC ACID [Concomitant]
  6. WELLBUTRIN SR (BUPROPIN HYDROCHLORIDE) [Concomitant]
  7. DEPAKOTE SR (VALPROATE SEMISODIUM) [Concomitant]
  8. ESTROGEN (ESTROGEN NOS) [Concomitant]
  9. ACTOS (PIOGTLIAZONE) [Concomitant]
  10. ENALAPRIL MALEATE [Concomitant]
  11. LOVASTATIN [Concomitant]
  12. DILTIAZEM [Concomitant]
  13. ASPIRIN [Concomitant]
  14. ALBUTEROL INHALER (SALBUTAMOL) [Concomitant]
  15. BENADRYL (DIPEHNHYDRAMINE HYDROCHLORIDE) [Concomitant]
  16. CALCIUM (CALCIUM) [Concomitant]

REACTIONS (2)
  - DIABETES MELLITUS [None]
  - TREMOR [None]
